FAERS Safety Report 19940507 (Version 1)
Quarter: 2021Q4

REPORT INFORMATION
  Report Type: Spontaneous
  Country: DE (occurrence: DE)
  Receive Date: 20211011
  Receipt Date: 20211011
  Transmission Date: 20220303
  Serious: Yes (Hospitalization, Other)
  Sender: FDA-Public Use
  Company Number: DE-BRISTOL-MYERS SQUIBB COMPANY-BMS-2021-086528

PATIENT
  Age: 79 Year
  Sex: Male

DRUGS (2)
  1. TAZOBACTAM [Suspect]
     Active Substance: TAZOBACTAM
     Dosage: UNK
     Dates: start: 20210802, end: 20210817
  2. OPDIVO [Suspect]
     Active Substance: NIVOLUMAB
     Indication: Metastatic malignant melanoma
     Dosage: 240 MG
     Route: 042
     Dates: start: 20210701, end: 20210715

REACTIONS (2)
  - Erysipelas [Recovering/Resolving]
  - Autoimmune nephritis [Recovering/Resolving]

NARRATIVE: CASE EVENT DATE: 20210817
